FAERS Safety Report 8960495 (Version 1)
Quarter: 2012Q4

REPORT INFORMATION
  Report Type: Spontaneous
  Country: GB (occurrence: None)
  Receive Date: 20121203
  Receipt Date: 20121203
  Transmission Date: 20130627
  Serious: Yes (Other)
  Sender: FDA-Public Use
  Company Number: 2008US-13255

PATIENT
  Age: 70 Year
  Sex: Male

DRUGS (8)
  1. DONEPEZIL [Suspect]
     Indication: PRODUCT USED FOR UNKNOWN INDICATION
  2. ATRACURIUM [Suspect]
     Indication: DRUG USE UNKNOWN INDICATION
  3. ALFUZOSIN (ALFUZOSIN) [Concomitant]
  4. BECLOMETASONE (BECLOMETASONE) [Concomitant]
  5. COMBIVENT (SALBUTAMOL/PRATROPIUM-BROMIDE) [Concomitant]
  6. FERROUS SULFATE (FERROUS SULFATE) [Concomitant]
  7. CO-CARELDPA (LEVODOPA/CARBIDOPA) [Concomitant]
  8. PROPOFOL (PROPOFOL) [Concomitant]

REACTIONS (3)
  - Drug ineffective [None]
  - Drug interaction [None]
  - Cough [None]
